FAERS Safety Report 6315864-4 (Version None)
Quarter: 2009Q3

REPORT INFORMATION
  Report Type: 
  Country: None (occurrence: None)
  Receive Date: 20090818
  Receipt Date: 20090811
  Transmission Date: 20100115
  Serious: Yes (Other)
  Sender: FDA-Public Use
  Company Number: CHPA2009US16930

PATIENT
  Age: 65 Year
  Sex: Female

DRUGS (2)
  1. EX-LAX REG STR CHOCOLATED LAX PCS SEN (NCH) (CA SALTS OF PURIFIED SENN [Suspect]
     Indication: ARTHRITIS
     Dosage: ORAL
     Route: 048
     Dates: start: 20070101, end: 20070101
  2. PREDNISONE TAB [Suspect]
     Indication: ARTHRITIS

REACTIONS (1)
  - DIABETES MELLITUS [None]
